FAERS Safety Report 6112438-5 (Version None)
Quarter: 2009Q1

REPORT INFORMATION
  Report Type: 
  Country: None (occurrence: None)
  Receive Date: 20090312
  Receipt Date: 20090227
  Transmission Date: 20090719
  Serious: Yes (Hospitalization)
  Sender: FDA-Public Use
  Company Number: US-KINGPHARMUSA00001-K200900168

PATIENT
  Age: 62 Year
  Sex: Male

DRUGS (7)
  1. ALTACE [Suspect]
     Indication: CARDIOVASCULAR DISORDER
     Dosage: 10 MG QD
     Route: 048
  2. ASPIRIN [Concomitant]
  3. AMLODIPINE [Concomitant]
  4. METOPROLOL TARTRATE [Concomitant]
  5. FUROSEMIDE [Concomitant]
  6. ATORVASTATIN [Concomitant]
  7. NITROGLICERINA [Concomitant]

REACTIONS (13)
  - ABDOMINAL PAIN [None]
  - ANAPHYLACTOID REACTION [None]
  - BRADYCARDIA [None]
  - BUNDLE BRANCH BLOCK LEFT [None]
  - DIARRHOEA [None]
  - DRUG INTERACTION [None]
  - HYPERHIDROSIS [None]
  - HYPOTENSION [None]
  - LOSS OF CONSCIOUSNESS [None]
  - MYOCARDIAL ISCHAEMIA [None]
  - NAUSEA [None]
  - SYNCOPE [None]
  - VOMITING [None]
